FAERS Safety Report 6792666-6 (Version None)
Quarter: 2010Q2

REPORT INFORMATION
  Report Type: 
  Country: None (occurrence: None)
  Receive Date: 20100624
  Receipt Date: 20080910
  Transmission Date: 20101027
  Serious: No
  Sender: FDA-Public Use
  Company Number: US-PFIZER INC-2008075664

PATIENT
  Sex: Female
  Weight: 54.545 kg

DRUGS (6)
  1. XALATAN [Suspect]
     Indication: GLAUCOMA
  2. ATENOLOL [Concomitant]
  3. GLIPIZIDE [Concomitant]
  4. ALL OTHER THERAPEUTIC PRODUCTS [Concomitant]
  5. VITAMINS [Concomitant]
  6. CALTRATE [Concomitant]

REACTIONS (3)
  - EYE IRRITATION [None]
  - EYE PRURITUS [None]
  - OCULAR HYPERAEMIA [None]
